FAERS Safety Report 10142348 (Version 2)
Quarter: 2014Q2

REPORT INFORMATION
  Report Type: Report from Study
  Country: US (occurrence: US)
  Receive Date: 20140430
  Receipt Date: 20140502
  Transmission Date: 20141212
  Serious: Yes (Hospitalization, Disabling, Other)
  Sender: FDA-Public Use
  Company Number: US-009507513-1404USA013892

PATIENT
  Age: 90 Year
  Sex: Male
  Weight: 78.46 kg

DRUGS (17)
  1. BLINDED EZETIMIBE (+) SIMVASTATIN [Suspect]
     Indication: ACUTE CORONARY SYNDROME
     Dosage: UNK
     Route: 048
     Dates: start: 20060420
  2. BLINDED THERAPY [Suspect]
     Indication: ACUTE CORONARY SYNDROME
     Dosage: UNK
     Route: 048
     Dates: start: 20060420
  3. LASIX (FUROSEMIDE SODIUM) [Concomitant]
     Dosage: 40 MG, BID
     Route: 048
     Dates: start: 20130327
  4. DULERA [Concomitant]
     Dosage: 100/50MCG/ACL II PUFFS Q12H
     Route: 055
     Dates: start: 20120430
  5. POTASSIUM (UNSPECIFIED) [Concomitant]
     Dosage: 100 MEQ, QD
     Route: 048
     Dates: start: 20121102
  6. OMEPRAZOLE [Concomitant]
     Dosage: 40 MG, QD
     Route: 048
     Dates: start: 20121206
  7. ALBUTEROL [Concomitant]
     Dosage: 2.5 MG, BY NEB Q6H
     Route: 055
     Dates: start: 20130207
  8. FERROUS SULFATE [Concomitant]
     Dosage: 325 MG, QD
     Route: 048
     Dates: start: 20131224
  9. METOPROLOL SUCCINATE [Concomitant]
     Dosage: 25 MG, QD
     Route: 048
     Dates: start: 20130613
  10. TRAMADIS [Concomitant]
     Dosage: 50 MG Q6H, PRN
     Route: 048
     Dates: start: 20130116
  11. SINEMET [Concomitant]
     Dosage: 10/100MG, TID
     Route: 048
     Dates: start: 20131218
  12. ASPIRIN [Concomitant]
     Dosage: 81 MG, QD
     Route: 048
     Dates: start: 20130328
  13. NORCO [Concomitant]
     Dosage: 5/325MG Q6H, PRN
     Route: 048
     Dates: start: 20131218
  14. MIRALAX [Concomitant]
     Dosage: 17 G, BID
     Route: 048
     Dates: start: 20130118
  15. LORAZEPAM [Concomitant]
     Dosage: 0.5 MG QID, PRN
     Route: 048
     Dates: start: 20130708
  16. MILK OF MAGNESIA [Concomitant]
     Dosage: 30 ML HS, PRN
     Route: 048
     Dates: start: 20120515
  17. PREDNISONE [Concomitant]
     Dosage: 5 MG, QD
     Route: 048
     Dates: start: 20130327

REACTIONS (1)
  - Pneumonia [Recovering/Resolving]
